FAERS Safety Report 8363825-6 (Version None)
Quarter: 2012Q2

REPORT INFORMATION
  Report Type: 
  Country: None (occurrence: None)
  Receive Date: 20120515
  Receipt Date: 20120515
  Transmission Date: 20120825
  Serious: Yes (Life-Threatening)
  Sender: FDA-Public Use
  Company Number: None

PATIENT
  Age: 65 Year
  Sex: Male
  Weight: 66.7 kg

DRUGS (2)
  1. LISINOPRIL AND HYDROCHLOROTHIAZIDE [Suspect]
     Indication: HYPERTENSION
     Dosage: 1 TAB EVERY DAY PO
     Route: 048
     Dates: start: 20110923, end: 20111129
  2. LISINOPRIL AND HYDROCHLOROTHIAZIDE [Suspect]
     Indication: DIABETES MELLITUS
     Dosage: 1 TAB EVERY DAY PO
     Route: 048
     Dates: start: 20110923, end: 20111129

REACTIONS (1)
  - HYPERKALAEMIA [None]
